FAERS Safety Report 5429455-0 (Version None)
Quarter: 2007Q3

REPORT INFORMATION
  Report Type: 
  Country: None (occurrence: None)
  Receive Date: 20070829
  Receipt Date: 20070822
  Transmission Date: 20080115
  Serious: Yes (Other)
  Sender: FDA-Public Use
  Company Number: US-ROCHE-513331

PATIENT
  Age: 21 Year
  Sex: Female

DRUGS (1)
  1. ACCUTANE [Suspect]
     Indication: DRUG USE FOR UNKNOWN INDICATION
     Dosage: IT WAS ALSO REPORTED THAT THE PATIENT WOULD SOMETIMES FORGET TO TAKE MED AND NOT TAKE IT DAILY
     Route: 065
     Dates: start: 20070413, end: 20070720

REACTIONS (2)
  - NO ADVERSE REACTION [None]
  - PREGNANCY [None]
